FAERS Safety Report 19323733 (Version 1)
Quarter: 2021Q2

REPORT INFORMATION
  Report Type: Spontaneous
  Country: US (occurrence: US)
  Receive Date: 20210528
  Receipt Date: 20210528
  Transmission Date: 20210717
  Serious: Yes (Other)
  Sender: FDA-Public Use
  Company Number: US-PURDUE-USA-2020-0219478

PATIENT
  Sex: Female

DRUGS (6)
  1. HYDROMORPHONE HCL ORAL SOLUTION (RHODES) [Suspect]
     Active Substance: HYDROMORPHONE HYDROCHLORIDE
     Indication: INJURY
     Dosage: UNK
     Route: 048
  2. HEROIN [Suspect]
     Active Substance: DIAMORPHINE
     Indication: INJURY
     Dosage: UNK
     Route: 065
  3. MS CONTIN [Suspect]
     Active Substance: MORPHINE SULFATE
     Indication: INJURY
     Dosage: UNK
     Route: 048
  4. MS IR [Suspect]
     Active Substance: MORPHINE SULFATE
     Indication: INJURY
     Dosage: UNK
     Route: 048
  5. OXYCONTIN [Suspect]
     Active Substance: OXYCODONE HYDROCHLORIDE
     Indication: INJURY
     Dosage: UNK
     Route: 048
  6. OXY IR [Suspect]
     Active Substance: OXYCODONE HYDROCHLORIDE
     Indication: INJURY
     Dosage: UNK
     Route: 048

REACTIONS (4)
  - Drug dependence [Recovered/Resolved]
  - Depression [Unknown]
  - Drug abuse [Unknown]
  - Impaired work ability [Unknown]
